FAERS Safety Report 8474850-9 (Version None)
Quarter: 2012Q2

REPORT INFORMATION
  Report Type: 
  Country: None (occurrence: None)
  Receive Date: 20120628
  Receipt Date: 20120621
  Transmission Date: 20120825
  Serious: Yes (Life-Threatening)
  Sender: FDA-Public Use
  Company Number: JP-SANOFI-AVENTIS-2011SA046709

PATIENT
  Age: 79 Year
  Sex: Female
  Weight: 50 kg

DRUGS (8)
  1. DEXAMETHASONE SODIUM PHOSPHATE OPHTHALMIC SOLUTION,0.1% [Concomitant]
  2. FLUOROURACIL [Suspect]
     Indication: LARGE INTESTINE CARCINOMA
     Dosage: DOSE-2142.9 MG/M2, INFUSION
     Route: 040
     Dates: start: 20110601, end: 20110601
  3. FLUOROURACIL [Suspect]
     Dosage: DOSE- 357.1 MG/M2, INFUSION
     Route: 040
     Dates: start: 20110601, end: 20110601
  4. ANTINEOPLASTIC AGENTS [Suspect]
     Indication: LARGE INTESTINE CARCINOMA
     Route: 041
     Dates: start: 20110601, end: 20110601
  5. PHENYTOIN SODIUM CAP [Concomitant]
     Dates: start: 20110603, end: 20110605
  6. OXALIPLATIN [Suspect]
     Indication: LARGE INTESTINE CARCINOMA
     Dosage: DOSE-71.4 MG/M2
     Route: 041
     Dates: start: 20110601, end: 20110601
  7. LEUCOVORIN CALCIUM [Concomitant]
     Indication: LARGE INTESTINE CARCINOMA
     Route: 041
     Dates: start: 20110601, end: 20110601
  8. KYTRIL [Concomitant]
     Dates: start: 20110601, end: 20110601

REACTIONS (2)
  - CONVULSION [None]
  - ALTERED STATE OF CONSCIOUSNESS [None]
